FAERS Safety Report 7606191-3 (Version None)
Quarter: 2011Q3

REPORT INFORMATION
  Report Type: 
  Country: None (occurrence: None)
  Receive Date: 20110705
  Receipt Date: 20110620
  Transmission Date: 20111222
  Serious: Yes (Other)
  Sender: FDA-Public Use
  Company Number: 2011MA007776

PATIENT
  Age: 26 Year
  Sex: Female

DRUGS (3)
  1. FENTANYL-100 [Concomitant]
  2. LIDOCAINE HCL [Suspect]
     Indication: ANAESTHESIA
     Dosage: 40 CC, 1X, PCER
     Route: 052
  3. PROPOFOL [Concomitant]

REACTIONS (4)
  - GRAND MAL CONVULSION [None]
  - NYSTAGMUS [None]
  - ACCIDENTAL OVERDOSE [None]
  - INJECTION SITE HAEMATOMA [None]
